FAERS Safety Report 7957585-8 (Version None)
Quarter: 2011Q4

REPORT INFORMATION
  Report Type: 
  Country: None (occurrence: None)
  Receive Date: 20111205
  Receipt Date: 20111128
  Transmission Date: 20120403
  Serious: Yes (Other)
  Sender: FDA-Public Use
  Company Number: MT-GLAXOSMITHKLINE-B0766870A

PATIENT
  Age: 32 Year
  Sex: Male

DRUGS (1)
  1. CEFUROXIME [Suspect]
     Indication: INFECTION
     Dosage: 500MG TWICE PER DAY
     Route: 048
     Dates: start: 20111125, end: 20111125

REACTIONS (4)
  - HYPERSENSITIVITY [None]
  - PRURITUS GENERALISED [None]
  - TONGUE DISORDER [None]
  - SWOLLEN TONGUE [None]
